FAERS Safety Report 4527278-8 (Version None)
Quarter: 2004Q4

REPORT INFORMATION
  Report Type: 
  Country: None (occurrence: None)
  Receive Date: 20041130
  Receipt Date: 20040910
  Transmission Date: 20050328
  Serious: No
  Sender: FDA-Public Use
  Company Number: FABR-10772

PATIENT
  Age: 31 Year
  Sex: Male
  Weight: 87.7 kg

DRUGS (6)
  1. FABRAZYME [Suspect]
     Indication: FABRY'S DISEASE
     Dosage: 70 MG Q2WKS IV
     Route: 042
     Dates: start: 20040828
  2. ATENOLOL [Suspect]
     Indication: ANEURYSM
     Dosage: 100 MG DAILY PO
     Route: 048
     Dates: start: 20040507
  3. ATENOLOL [Suspect]
     Indication: HYPERTENSION
     Dosage: 100 MG DAILY PO
     Route: 048
     Dates: start: 20040507
  4. ATENOLOL [Concomitant]
  5. BENADRYL [Concomitant]
  6. TYLENOL (CAPLET) [Concomitant]

REACTIONS (5)
  - CHILLS [None]
  - DEHYDRATION [None]
  - HYPOTENSION [None]
  - NAUSEA [None]
  - SYNCOPE [None]
